FAERS Safety Report 11130722 (Version 1)
Quarter: 2015Q2

REPORT INFORMATION
  Report Type: Spontaneous
  Country: US (occurrence: None)
  Receive Date: 20150511
  Receipt Date: 20150511
  Transmission Date: 20150821
  Serious: Yes (Other)
  Sender: FDA-Public Use
  Company Number: 2014-20317

PATIENT
  Sex: Female

DRUGS (1)
  1. BUPROPION HYDROCHLORIDE (WATSON LABORATORIES) (BUPROPION HYDROCHLORIDE) PROLONGED RELEASE [Suspect]
     Active Substance: BUPROPION HYDROCHLORIDE
     Indication: PRODUCT USED FOR UNKNOWN INDICATION

REACTIONS (1)
  - Hypersensitivity [None]
